FAERS Safety Report 12286077 (Version 1)
Quarter: 2016Q2

REPORT INFORMATION
  Report Type: Spontaneous
  Country: CN (occurrence: CN)
  Receive Date: 20160420
  Receipt Date: 20160420
  Transmission Date: 20160815
  Serious: Yes (Hospitalization, Disabling, Other)
  Sender: FDA-Public Use
  Company Number: CN-PFIZER INC-2016210207

PATIENT
  Age: 33 Year
  Sex: Male
  Weight: 48 kg

DRUGS (3)
  1. VINCRISTINE SULFATE. [Suspect]
     Active Substance: VINCRISTINE SULFATE
     Indication: NEOPLASM
     Dosage: 2 MG, 1X/DAY
     Route: 042
     Dates: start: 20151013, end: 20151013
  2. IDARUBICIN HCL [Suspect]
     Active Substance: IDARUBICIN HYDROCHLORIDE
     Indication: NEOPLASM
     Dosage: 5 MG, 1X/DAY
     Route: 042
     Dates: start: 20151013, end: 20151015
  3. PREDNISONE ACETATE [Concomitant]
     Active Substance: PREDNISONE ACETATE
     Indication: NEOPLASM
     Dosage: 45 MG, 1X/DAY
     Route: 048
     Dates: start: 20151004, end: 20151023

REACTIONS (3)
  - Granulocytopenia [Not Recovered/Not Resolved]
  - Pyrexia [Not Recovered/Not Resolved]
  - Proctalgia [Not Recovered/Not Resolved]

NARRATIVE: CASE EVENT DATE: 20151015
